FAERS Safety Report 21811617 (Version 1)
Quarter: 2022Q4

REPORT INFORMATION
  Report Type: Spontaneous
  Country: US (occurrence: None)
  Receive Date: 20221230
  Receipt Date: 20221230
  Transmission Date: 20230113
  Serious: Yes (Hospitalization)
  Sender: FDA-Public Use
  Company Number: None

PATIENT
  Age: 77 Year
  Sex: Female
  Weight: 61.69 kg

DRUGS (12)
  1. MOLNUPIRAVIR [Suspect]
     Active Substance: MOLNUPIRAVIR
     Indication: COVID-19
     Dosage: FREQUENCY : TWICE A DAY;?
     Route: 048
     Dates: start: 20221223, end: 20221225
  2. LAGEVRIO [Suspect]
     Active Substance: MOLNUPIRAVIR
     Indication: COVID-19
     Dosage: FREQUENCY : TWICE A DAY;?
     Route: 048
     Dates: start: 20221223, end: 20221225
  3. CYCLOBENZAPRINE [Concomitant]
     Active Substance: CYCLOBENZAPRINE
  4. SYNTHROID [Concomitant]
     Active Substance: LEVOTHYROXINE SODIUM
  5. LIPITOR [Concomitant]
     Active Substance: ATORVASTATIN CALCIUM
  6. HUMIRA [Concomitant]
     Active Substance: ADALIMUMAB
  7. ULORIC [Concomitant]
     Active Substance: FEBUXOSTAT
  8. ZYLOPRIM [Concomitant]
     Active Substance: ALLOPURINOL
  9. NEBIVOLOL (BYSTOLIC) [Concomitant]
  10. ARAVA [Concomitant]
     Active Substance: LEFLUNOMIDE
  11. TRAMADOL (ULTRAM) [Concomitant]
  12. SODIUM BICARBONATE [Concomitant]
     Active Substance: SODIUM BICARBONATE

REACTIONS (4)
  - Oedema peripheral [None]
  - Blood creatine abnormal [None]
  - Hypertransaminasaemia [None]
  - Condition aggravated [None]

NARRATIVE: CASE EVENT DATE: 20221221
